FAERS Safety Report 8346211-4 (Version None)
Quarter: 2012Q2

REPORT INFORMATION
  Report Type: 
  Country: None (occurrence: None)
  Receive Date: 20120509
  Receipt Date: 20120502
  Transmission Date: 20120825
  Serious: Yes (Other)
  Sender: FDA-Public Use
  Company Number: BR-ELI_LILLY_AND_COMPANY-BR201203004622

PATIENT
  Sex: Female
  Weight: 52.5 kg

DRUGS (4)
  1. HUMALOG [Suspect]
     Indication: TYPE 1 DIABETES MELLITUS
     Dosage: 1 IU, OTHER
     Route: 058
     Dates: start: 20120312
  2. HUMULIN N [Suspect]
     Indication: TYPE 1 DIABETES MELLITUS
     Dosage: 10 IU, EACH MORNING
     Route: 065
  3. HUMULIN N [Suspect]
     Dosage: 5 IU, EACH EVENING
     Route: 065
  4. HUMALOG [Suspect]
     Dosage: UNK, OTHER

REACTIONS (5)
  - BLOOD GLUCOSE INCREASED [None]
  - LIPODYSTROPHY ACQUIRED [None]
  - DRUG DOSE OMISSION [None]
  - INJECTION SITE HAEMORRHAGE [None]
  - DRUG INEFFECTIVE [None]
